FAERS Safety Report 15704692 (Version 1)
Quarter: 2018Q4

REPORT INFORMATION
  Report Type: Spontaneous
  Country: TJ (occurrence: TJ)
  Receive Date: 20181210
  Receipt Date: 20181210
  Transmission Date: 20190205
  Serious: Yes (Death)
  Sender: FDA-Public Use
  Company Number: PHHY2018TJ179247

PATIENT
  Sex: Male

DRUGS (1)
  1. GLIVEC [Suspect]
     Active Substance: IMATINIB MESYLATE
     Indication: CHRONIC MYELOID LEUKAEMIA
     Dosage: 400 MG, (4X100MG)
     Route: 065

REACTIONS (4)
  - Bacterial toxaemia [Fatal]
  - Agranulocytosis [Fatal]
  - Infection [Fatal]
  - Circulatory collapse [Fatal]
